FAERS Safety Report 8616707 (Version 5)
Quarter: 2013Q2

REPORT INFORMATION
  Report Type: Spontaneous
  Country: US (occurrence: None)
  Receive Date: 20120601
  Receipt Date: 20130507
  Transmission Date: 20140414
  Serious: Yes (Hospitalization, Other)
  Sender: FDA-Public Use
  Company Number: ADR-2012-00994

PATIENT
  Sex: Male

DRUGS (2)
  1. LIORESAL INTRATHECAL (BACLOFEN INJECTION) [Suspect]
     Indication: BRAIN INJURY
  2. LIORESAL INTRATHECAL (BACLOFEN INJECTION) [Suspect]
     Indication: MUSCLE SPASTICITY

REACTIONS (11)
  - SEPSIS [None]
  - HYPOTENSION [None]
  - HYPOTHERMIA [None]
  - PLATELET COUNT DECREASED [None]
  - WHITE BLOOD CELL COUNT DECREASED [None]
  - HYPERTONIA [None]
  - DEVICE RELATED INFECTION [None]
  - Cyanosis [None]
  - Nervous system disorder [None]
  - Adrenal insufficiency [None]
  - Laboratory test abnormal [None]
